FAERS Safety Report 7832187-2 (Version None)
Quarter: 2011Q4

REPORT INFORMATION
  Report Type: 
  Country: None (occurrence: None)
  Receive Date: 20111022
  Receipt Date: 20111005
  Transmission Date: 20120403
  Serious: Yes (Other)
  Sender: FDA-Public Use
  Company Number: US-BAYER-2011-052533

PATIENT
  Age: 26 Year
  Sex: Female
  Weight: 96.145 kg

DRUGS (2)
  1. YAZ [Suspect]
     Indication: PRODUCT USED FOR UNKNOWN INDICATION
     Dosage: UNK
     Dates: start: 20090501
  2. DEPO-PROVERA [Concomitant]
     Dosage: UNK
     Dates: start: 20050501, end: 20090501

REACTIONS (7)
  - THROMBOSIS [None]
  - PARAESTHESIA [None]
  - INJURY [None]
  - POOR PERIPHERAL CIRCULATION [None]
  - ARTERIAL THROMBOSIS LIMB [None]
  - HYPOAESTHESIA [None]
  - PAIN [None]
